FAERS Safety Report 6937476-1 (Version None)
Quarter: 2010Q3

REPORT INFORMATION
  Report Type: 
  Country: None (occurrence: None)
  Receive Date: 20100823
  Receipt Date: 20100813
  Transmission Date: 20110219
  Serious: Yes (Hospitalization)
  Sender: FDA-Public Use
  Company Number: JP-AMGEN-KDC392931

PATIENT
  Sex: Female
  Weight: 53 kg

DRUGS (18)
  1. DENOSUMAB [Suspect]
     Indication: METASTASES TO BONE
     Route: 058
     Dates: start: 20090803
  2. XELODA [Suspect]
     Indication: BREAST CANCER METASTATIC
     Route: 048
     Dates: start: 20100723
  3. ENDOXAN [Suspect]
     Indication: BREAST CANCER METASTATIC
     Route: 048
     Dates: start: 20100723
  4. ZANTAC [Concomitant]
     Indication: PREMEDICATION
     Dosage: TIME OF ADMINISTRATION OF TAXOTERE
     Route: 042
     Dates: start: 20100201, end: 20100426
  5. DEXAMETHASONE SODIUM PHOSPHATE [Concomitant]
     Indication: PREMEDICATION
     Dosage: TIME OF ADMINISTRATION OF TAXOTERE
     Route: 042
     Dates: start: 20100201, end: 20100614
  6. GRANISETRON HYDROCHLORIDE [Concomitant]
     Indication: PREMEDICATION
     Dosage: TIME OF ADMINISTRATION OF TAXOTERE
     Route: 042
     Dates: start: 20100201, end: 20100614
  7. TAXOTERE [Concomitant]
     Indication: BREAST CANCER METASTATIC
     Route: 042
     Dates: start: 20100201, end: 20100614
  8. BETAMETHASONE [Concomitant]
     Indication: PROPHYLAXIS OF NAUSEA AND VOMITING
     Route: 048
     Dates: start: 20100201, end: 20100618
  9. CALCIUM [Concomitant]
     Indication: NUTRITIONAL SUPPORT
     Dosage: AS NEEDED
     Route: 048
     Dates: start: 20091026, end: 20100404
  10. CALCIUM [Concomitant]
     Route: 048
     Dates: start: 20100405, end: 20100614
  11. CALCIUM [Concomitant]
     Dosage: AS NEEDED
     Route: 048
     Dates: start: 20100615
  12. VITAMIN D [Concomitant]
     Indication: NUTRITIONAL SUPPORT
     Dosage: AS NEEDED
     Route: 048
     Dates: start: 20091026, end: 20100404
  13. VITAMIN D [Concomitant]
     Route: 048
     Dates: start: 20100405, end: 20100614
  14. VITAMIN D [Concomitant]
     Dosage: AS NEEDED
     Route: 048
     Dates: start: 20100615
  15. BROTIZOLAM [Concomitant]
     Indication: INSOMNIA
     Route: 048
     Dates: start: 20100208
  16. REBAMIPIDE [Concomitant]
     Indication: GASTRITIS PROPHYLAXIS
     Dosage: AS NEEDED
     Route: 048
     Dates: start: 20100222
  17. REBAMIPIDE [Concomitant]
     Dosage: AS NEEDED
     Route: 048
     Dates: start: 20100531, end: 20100602
  18. OXYCONTIN [Concomitant]
     Indication: INTRACRANIAL HYPOTENSION
     Route: 048
     Dates: start: 20080320

REACTIONS (1)
  - OSTEOMYELITIS [None]
